FAERS Safety Report 15029219 (Version 6)
Quarter: 2020Q3

REPORT INFORMATION
  Report Type: Spontaneous
  Country: US (occurrence: US)
  Receive Date: 20180619
  Receipt Date: 20200909
  Transmission Date: 20201102
  Serious: Yes (Other)
  Sender: FDA-Public Use
  Company Number: US-BRISTOL-MYERS SQUIBB COMPANY-BMS-2018-055747

PATIENT
  Sex: Female
  Weight: 59.87 kg

DRUGS (2)
  1. ORENCIA [Suspect]
     Active Substance: ABATACEPT
     Indication: ARTHROPATHY
  2. ORENCIA [Suspect]
     Active Substance: ABATACEPT
     Indication: OSTEOPOROSIS
     Dosage: 750 MG, WEEK 0,2,4 THEN EVERY 4 WEEKS
     Route: 042
     Dates: start: 201502

REACTIONS (7)
  - Pain [Unknown]
  - Drug ineffective [Unknown]
  - Arthropathy [Unknown]
  - Localised infection [Unknown]
  - Renal disorder [Unknown]
  - Intentional product use issue [Unknown]
  - Condition aggravated [Unknown]
